FAERS Safety Report 5855129-8 (Version None)
Quarter: 2008Q3

REPORT INFORMATION
  Report Type: 
  Country: None (occurrence: None)
  Receive Date: 20080821
  Receipt Date: 20080807
  Transmission Date: 20090109
  Serious: Yes (Death)
  Sender: FDA-Public Use
  Company Number: 2008AL007317

PATIENT
  Age: 77 Year
  Sex: Female

DRUGS (10)
  1. DIGOXIN [Suspect]
  2. HUMALOG [Concomitant]
  3. LANTES(30U) [Concomitant]
  4. SPIRONOLACTONE [Concomitant]
  5. TORSEMIDE [Concomitant]
  6. PROBENECID [Concomitant]
  7. HYDROCODONE BITARTRATE [Concomitant]
  8. ALBUTEROL NEBULIZAR [Concomitant]
  9. MELATONIN(300MCG) [Concomitant]
  10. FLUOXETINE [Concomitant]

REACTIONS (11)
  - BLOOD GLUCOSE INCREASED [None]
  - CONFUSIONAL STATE [None]
  - DECREASED APPETITE [None]
  - DELIRIUM [None]
  - FATIGUE [None]
  - NAUSEA [None]
  - RENAL FAILURE [None]
  - SYNCOPE [None]
  - THERAPEUTIC AGENT TOXICITY [None]
  - UNRESPONSIVE TO STIMULI [None]
  - VOMITING [None]
